FAERS Safety Report 10011931 (Version 12)
Quarter: 2014Q2

REPORT INFORMATION
  Report Type: Report from Study
  Country: NZ (occurrence: NZ)
  Receive Date: 20140314
  Receipt Date: 20140630
  Transmission Date: 20141212
  Serious: Yes (Hospitalization)
  Sender: FDA-Public Use
  Company Number: PHHO2014NZ002978

PATIENT
  Age: 72 Year
  Sex: Female
  Weight: 60.9 kg

DRUGS (19)
  1. AFINITOR [Suspect]
     Indication: PANCREATIC NEUROENDOCRINE TUMOUR METASTATIC
     Dosage: 10 MG, QD
     Route: 048
     Dates: start: 20121009, end: 20140221
  2. AFINITOR [Suspect]
     Dosage: 5 MG, UNK
     Dates: start: 20140304, end: 20140402
  3. METOCLOPRAMIDE [Concomitant]
     Indication: NAUSEA
     Dosage: 20 MG, Q6H
  4. SALBUTAMOL [Concomitant]
     Dosage: 2 DF (PUFFS), BID
     Route: 055
  5. PARACETAMOL [Concomitant]
     Dosage: 1 G EVERY 20 HRS PER DAY
     Route: 048
  6. PANTOPRAZOLO DR RED [Concomitant]
     Indication: PEPTIC ULCER
     Dosage: 40 MG, BID
  7. NODIA//LOPERAMIDE HYDROCHLORIDE [Concomitant]
     Indication: DIARRHOEA
     Dosage: 1-2 CAPS AS REQUIRED, MAXIMUM 8 CAPS DAILY
  8. ASPIRIN [Concomitant]
     Dosage: 100 MG, QD
     Route: 048
  9. SYMBICORT TU [Concomitant]
     Dosage: 1 DF (PUFF), BID
     Route: 055
  10. ARROW-RANITIDINE [Concomitant]
     Dosage: 150 MG, BID
     Route: 048
  11. NEO-MERCAZOLE [Concomitant]
     Dosage: 5 MG, BID
     Route: 048
  12. PLENDIL ER [Concomitant]
     Dosage: 10 MG, QD
     Route: 048
  13. METOPROLOL [Concomitant]
     Indication: BLOOD PRESSURE
     Dosage: 47.5 MG, QD
     Route: 048
  14. ACCURETIC [Concomitant]
     Dosage: 1 DF, QD (10MG/12.5 MG, QD)
     Route: 048
  15. RANITIDINE [Concomitant]
     Indication: PEPTIC ULCER
     Dosage: 150 MG, BID
     Route: 048
  16. BUDESONIDE W/FORMOTEROL FUMARATE [Concomitant]
     Indication: ASTHMA
     Dosage: BID
  17. FELODIPINE [Concomitant]
     Indication: BLOOD PRESSURE
     Dosage: 10 MG, QD
     Route: 048
  18. METFORMIN [Concomitant]
     Dosage: 500 MG, BID
     Route: 048
  19. OMEPRAZOLE [Concomitant]
     Dosage: 40 MG, QD
     Route: 048

REACTIONS (3)
  - Duodenal ulcer [Recovered/Resolved]
  - Oesophagitis [Recovered/Resolved]
  - Gastroenteritis aeromonas [Recovering/Resolving]
